FAERS Safety Report 7229454-2 (Version None)
Quarter: 2011Q1

REPORT INFORMATION
  Report Type: 
  Country: None (occurrence: None)
  Receive Date: 20110117
  Receipt Date: 20110112
  Transmission Date: 20110831
  Serious: Yes (Hospitalization)
  Sender: FDA-Public Use
  Company Number: B0693900A

PATIENT
  Sex: Female

DRUGS (7)
  1. NORVASC [Suspect]
     Indication: PRODUCT USED FOR UNKNOWN INDICATION
     Dosage: 5MG PER DAY
     Route: 048
  2. DIOVAN [Concomitant]
     Dosage: 40MG TWICE PER DAY
     Route: 048
  3. URBANYL [Concomitant]
     Dosage: 5MG TWICE PER DAY
     Route: 048
  4. LAMICTAL [Suspect]
     Indication: PRODUCT USED FOR UNKNOWN INDICATION
     Dosage: 75MG TWICE PER DAY
     Route: 048
  5. PRAVASTATIN SODIUM [Concomitant]
     Dosage: 20MG PER DAY
     Route: 048
  6. VALPROAT [Suspect]
     Indication: PRODUCT USED FOR UNKNOWN INDICATION
     Dosage: 300MG FIVE TIMES PER DAY
     Route: 048
  7. MAGNESIOCARD [Concomitant]
     Dosage: 5MMOL PER DAY
     Route: 048

REACTIONS (4)
  - INAPPROPRIATE ANTIDIURETIC HORMONE SECRETION [None]
  - CONFUSIONAL STATE [None]
  - HYPONATRAEMIA [None]
  - ACCIDENTAL OVERDOSE [None]
